FAERS Safety Report 13553355 (Version 5)
Quarter: 2017Q4

REPORT INFORMATION
  Report Type: Spontaneous
  Country: US (occurrence: US)
  Receive Date: 20170517
  Receipt Date: 20171113
  Transmission Date: 20180320
  Serious: Yes (Death, Hospitalization, Other)
  Sender: FDA-Public Use
  Company Number: US-AMGEN-USASP2017071146

PATIENT
  Age: 64 Year
  Sex: Female
  Weight: 105.7 kg

DRUGS (1)
  1. NEULASTA [Suspect]
     Active Substance: PEGFILGRASTIM
     Indication: PRODUCT USED FOR UNKNOWN INDICATION
     Dosage: UNK
     Route: 065
     Dates: start: 20170504

REACTIONS (14)
  - Drug hypersensitivity [Fatal]
  - Nausea [Unknown]
  - Bladder dilatation [Unknown]
  - Diastolic dysfunction [Unknown]
  - Dizziness [Unknown]
  - Metastases to liver [Unknown]
  - Pain [Not Recovered/Not Resolved]
  - Pulmonary mass [Unknown]
  - Gait inability [Unknown]
  - Malaise [Unknown]
  - Chest pain [Not Recovered/Not Resolved]
  - Pleural effusion [Unknown]
  - Asthenia [Not Recovered/Not Resolved]
  - Vomiting [Unknown]

NARRATIVE: CASE EVENT DATE: 2017
